FAERS Safety Report 7741932-6 (Version None)
Quarter: 2011Q3

REPORT INFORMATION
  Report Type: 
  Country: None (occurrence: None)
  Receive Date: 20110912
  Receipt Date: 20110831
  Transmission Date: 20111222
  Serious: Yes (Other)
  Sender: FDA-Public Use
  Company Number: FR-JNJFOC-20110901188

PATIENT
  Sex: Female

DRUGS (16)
  1. FORLAX [Concomitant]
     Route: 048
  2. DURAGESIC-100 [Suspect]
     Indication: PRODUCT USED FOR UNKNOWN INDICATION
     Route: 062
     Dates: start: 20110712, end: 20110713
  3. DIGOXIN [Concomitant]
     Route: 048
  4. LOVENOX [Concomitant]
     Route: 065
  5. ATORVASTATIN CALCIUM [Concomitant]
     Route: 048
  6. COUMADIN [Concomitant]
     Route: 048
  7. RABEPRAZOLE SODIUM [Concomitant]
     Route: 048
  8. ATARAX [Concomitant]
     Route: 048
  9. CETIRIZINE HCL [Concomitant]
     Route: 065
  10. ALENDRONIC ACID [Concomitant]
     Route: 065
  11. ATACAND [Concomitant]
     Route: 048
  12. PREDNISONE [Concomitant]
     Route: 065
  13. BISOPROLOL FUMARATE [Concomitant]
     Route: 048
  14. ACETAMINOPHEN [Concomitant]
     Route: 048
  15. CALCIDOSE VITAMINE D [Concomitant]
     Route: 048
  16. FUROSEMIDE [Concomitant]
     Route: 048

REACTIONS (6)
  - VOMITING [None]
  - NAUSEA [None]
  - MALAISE [None]
  - ABDOMINAL PAIN UPPER [None]
  - ANXIETY [None]
  - TACHYARRHYTHMIA [None]
